FAERS Safety Report 5456286-8 (Version None)
Quarter: 2007Q3

REPORT INFORMATION
  Report Type: 
  Country: None (occurrence: None)
  Receive Date: 20070918
  Receipt Date: 20070228
  Transmission Date: 20080115
  Serious: No
  Sender: FDA-Public Use
  Company Number: US-ASTRAZENECA-2006UW24550

PATIENT
  Age: 18787 Day
  Sex: Male
  Weight: 81.8 kg

DRUGS (6)
  1. SEROQUEL [Suspect]
     Indication: SCHIZOPHRENIA
     Route: 048
     Dates: start: 20030101
  2. SEROQUEL [Suspect]
     Indication: BIPOLAR DISORDER
     Route: 048
     Dates: start: 20030101
  3. SEROQUEL [Suspect]
     Indication: DEPRESSION
     Route: 048
     Dates: start: 20030101
  4. HALDOL [Concomitant]
     Dates: start: 20020701, end: 20021201
  5. RISPERDAL [Concomitant]
     Dates: start: 20030101
  6. ZYPREXA/SYMBYAX [Concomitant]
     Dates: start: 19950101, end: 20000101

REACTIONS (1)
  - DIABETES MELLITUS [None]
